FAERS Safety Report 8925908 (Version 2)
Quarter: 2012Q4

REPORT INFORMATION
  Report Type: 
  Country: JP (occurrence: JP)
  Receive Date: 20121126
  Receipt Date: 20121130
  Transmission Date: 20130627
  Serious: Yes (Hospitalization)
  Sender: FDA-Public Use
  Company Number: PHHY2012JP106594

PATIENT
  Age: 64 Year
  Sex: Female

DRUGS (7)
  1. CARBAMAZEPINE [Suspect]
     Indication: TRIGEMINAL NEURALGIA
  2. LIORESAL [Concomitant]
     Indication: TRIGEMINAL NEURALGIA
  3. NADOLOL [Concomitant]
     Route: 048
  4. AMLODIPINE [Concomitant]
  5. ROSUVASTATIN CALCIUM [Concomitant]
     Route: 048
  6. RALOXIFENE HYDROCHLORIDE [Concomitant]
     Route: 048
  7. ALFACALCIDOL [Concomitant]
     Route: 048

REACTIONS (1)
  - Hepatitis acute [Unknown]
